FAERS Safety Report 5991934-5 (Version None)
Quarter: 2008Q4

REPORT INFORMATION
  Report Type: 
  Country: None (occurrence: None)
  Receive Date: 20081211
  Receipt Date: 20080509
  Transmission Date: 20090506
  Serious: No
  Sender: FDA-Public Use
  Company Number: US-AMGEN-KDL273126

PATIENT
  Sex: Female

DRUGS (4)
  1. ENBREL [Suspect]
     Indication: PSORIASIS
     Route: 058
     Dates: start: 20040621
  2. ENBREL [Suspect]
     Indication: PSORIATIC ARTHROPATHY
  3. CORTICOSTEROIDS [Concomitant]
     Route: 061
  4. CLOBETASOL PROPIONATE [Concomitant]
     Route: 061
     Dates: start: 20050912

REACTIONS (1)
  - BREAST CYST [None]
